FAERS Safety Report 8066998-8 (Version None)
Quarter: 2012Q1

REPORT INFORMATION
  Report Type: 
  Country: None (occurrence: None)
  Receive Date: 20120124
  Receipt Date: 20120119
  Transmission Date: 20120608
  Serious: Yes (Other)
  Sender: FDA-Public Use
  Company Number: ES-MERCK-1201ESP00019

PATIENT
  Age: 24 Month
  Sex: Female

DRUGS (1)
  1. SINGULAIR [Suspect]
     Indication: ASTHMA
     Route: 048
     Dates: start: 20111107, end: 20111110

REACTIONS (3)
  - NERVOUSNESS [None]
  - INSOMNIA [None]
  - ORAL PRURITUS [None]
